FAERS Safety Report 9566218 (Version 1)
Quarter: 2013Q3

REPORT INFORMATION
  Report Type: Spontaneous
  Country: US (occurrence: US)
  Receive Date: 20130930
  Receipt Date: 20130930
  Transmission Date: 20140515
  Serious: No
  Sender: FDA-Public Use
  Company Number: US-ASTRAZENECA-2013SE69696

PATIENT
  Age: 80 Year
  Sex: Male
  Weight: 71.2 kg

DRUGS (7)
  1. BRILINTA [Suspect]
     Indication: STENT PLACEMENT
     Route: 048
     Dates: start: 201309
  2. DIAZEPAM [Concomitant]
     Indication: ANXIETY
     Route: 048
  3. LORCET [Concomitant]
     Indication: PAIN
     Route: 048
  4. ASPIRIN [Concomitant]
     Indication: CARDIAC DISORDER
     Route: 048
  5. PRAVASTATIN [Concomitant]
     Indication: BLOOD PRESSURE ABNORMAL
     Route: 048
  6. FLOMAX [Concomitant]
     Indication: URINARY INCONTINENCE
     Route: 048
  7. STOOL SOFTNER OTC [Concomitant]
     Indication: DIARRHOEA
     Dosage: UNK PRN
     Route: 048

REACTIONS (3)
  - Hyperhidrosis [Not Recovered/Not Resolved]
  - Asthenia [Not Recovered/Not Resolved]
  - Sleep disorder [Unknown]
